FAERS Safety Report 5870713-3 (Version None)
Quarter: 2008Q3

REPORT INFORMATION
  Report Type: 
  Country: None (occurrence: None)
  Receive Date: 20080904
  Receipt Date: 20080827
  Transmission Date: 20090109
  Serious: Yes (Other)
  Sender: FDA-Public Use
  Company Number: US-BAYER-200832191NA

PATIENT
  Sex: Male

DRUGS (1)
  1. TRASYLOL [Suspect]
     Indication: CORONARY ARTERY BYPASS
     Route: 042
     Dates: start: 20050819

REACTIONS (6)
  - COGNITIVE DISORDER [None]
  - EMOTIONAL DISTRESS [None]
  - HYPOXIC ENCEPHALOPATHY [None]
  - INJURY [None]
  - LEG AMPUTATION [None]
  - RENAL FAILURE [None]
